FAERS Safety Report 6587879-2 (Version None)
Quarter: 2010Q1

REPORT INFORMATION
  Report Type: 
  Country: None (occurrence: None)
  Receive Date: 20100217
  Receipt Date: 20100217
  Transmission Date: 20100710
  Serious: Yes (Hospitalization)
  Sender: FDA-Public Use
  Company Number: None

PATIENT
  Sex: Female
  Weight: 59.5 kg

DRUGS (3)
  1. AVASTIN [Suspect]
     Indication: BREAST CANCER
     Dosage: 636 MG Q2WEEKS IV
     Route: 042
     Dates: start: 20100203
  2. DOXORUBICIN HCL [Suspect]
     Indication: BREAST CANCER
     Dosage: 102 MG Q2WEEKS IV
     Route: 042
     Dates: start: 20100203
  3. CYTOXAN [Suspect]
     Dosage: 1018 MG Q2WEEKS IV
     Route: 042
     Dates: start: 20100203

REACTIONS (13)
  - ANAEMIA [None]
  - DECREASED APPETITE [None]
  - DEHYDRATION [None]
  - EAR DISCOMFORT [None]
  - EPISTAXIS [None]
  - FATIGUE [None]
  - FEBRILE NEUTROPENIA [None]
  - NAUSEA [None]
  - PLATELET COUNT DECREASED [None]
  - PYREXIA [None]
  - RHINORRHOEA [None]
  - SINUS CONGESTION [None]
  - SINUSITIS [None]
